FAERS Safety Report 13094034 (Version 2)
Quarter: 2017Q1

REPORT INFORMATION
  Report Type: Spontaneous
  Country: US (occurrence: US)
  Receive Date: 20170106
  Receipt Date: 20170208
  Transmission Date: 20170428
  Serious: No
  Sender: FDA-Public Use
  Company Number: US-PFIZER INC-2016604600

PATIENT

DRUGS (1)
  1. ADVIL [Suspect]
     Active Substance: IBUPROFEN
     Dosage: UNK

REACTIONS (7)
  - Rhinorrhoea [Unknown]
  - Stupor [Unknown]
  - Activities of daily living impaired [Unknown]
  - Disturbance in attention [Unknown]
  - Eye disorder [Unknown]
  - Lack of spontaneous speech [Unknown]
  - Headache [Unknown]
